FAERS Safety Report 9400831 (Version 2)
Quarter: 2013Q4

REPORT INFORMATION
  Report Type: Spontaneous
  Country: JP (occurrence: None)
  Receive Date: 20130711
  Receipt Date: 20131016
  Transmission Date: 20140711
  Serious: Yes (Other)
  Sender: FDA-Public Use
  Company Number: SYM-2013-05350

PATIENT
  Sex: 0

DRUGS (3)
  1. FLUOROURACIL (FLUOROURACIL) (FLUOROURACIL) [Suspect]
     Indication: NEOPLASM MALIGNANT
  2. CISPLATIN (CISPLATIN) [Suspect]
     Indication: NEOPLASM MALIGNANT
  3. TAXOTERE (DOCETAXEL) [Suspect]

REACTIONS (1)
  - Hepatitis B [None]
